FAERS Safety Report 16233179 (Version 1)
Quarter: 2019Q2

REPORT INFORMATION
  Report Type: Spontaneous
  Country: US (occurrence: US)
  Receive Date: 20190319
  Receipt Date: 20190319
  Transmission Date: 20190711
  Serious: No
  Sender: FDA-Public Use
  Company Number: None

PATIENT
  Age: 45 Year
  Sex: Male

DRUGS (1)
  1. FLORA + BAST AGE ADAPTING SLEEP TINCTURE 1 OZ [Suspect]
     Active Substance: CANNABIS SATIVA SEED OIL
     Indication: SLEEP DISORDER THERAPY
     Route: 048
     Dates: start: 20190214

REACTIONS (4)
  - Abdominal discomfort [None]
  - Inadequate aseptic technique in manufacturing of product [None]
  - Product contamination microbial [None]
  - Therapeutic product ineffective [None]
